FAERS Safety Report 7502170-5 (Version None)
Quarter: 2011Q2

REPORT INFORMATION
  Report Type: 
  Country: None (occurrence: None)
  Receive Date: 20110525
  Receipt Date: 20110511
  Transmission Date: 20111010
  Serious: Yes (Hospitalization)
  Sender: FDA-Public Use
  Company Number: US-B.I. PHARMACEUTICALS,INC./RIDGEFIELD-2011-BP-08428BP

PATIENT
  Sex: Male

DRUGS (8)
  1. TERAZOSIN HCL [Concomitant]
     Dosage: 2 MG
  2. HYDROCHLOROT [Concomitant]
     Dosage: 12.5 MG
  3. DILTIAZEM [Concomitant]
     Dosage: 180 MG
  4. MIRAPEX [Concomitant]
     Indication: RESTLESS LEGS SYNDROME
  5. GABAPENTIN [Concomitant]
     Indication: RESTLESS LEGS SYNDROME
     Dosage: 900 MG
  6. BUPROPION HCL [Concomitant]
     Dosage: 300 MG
  7. PRADAXA [Suspect]
     Indication: ATRIAL FIBRILLATION
     Dosage: 300 MG
     Route: 048
  8. METOPROLOL [Concomitant]
     Dosage: 50 MG

REACTIONS (1)
  - HEART RATE INCREASED [None]
